FAERS Safety Report 5160833-3 (Version None)
Quarter: 2006Q4

REPORT INFORMATION
  Report Type: 
  Country: None (occurrence: None)
  Receive Date: 20061121
  Receipt Date: 20061116
  Transmission Date: 20070319
  Serious: Yes (Life-Threatening)
  Sender: FDA-Public Use
  Company Number: 225772

PATIENT
  Age: 70 Year
  Sex: Male

DRUGS (5)
  1. GRTPA (ALTEPLASE) PWDR + SOLVENT, INFUSION SOLN [Suspect]
     Indication: CEREBRAL INFARCTION
     Dosage: 41.37 MG, SINGLE, INTRAVENOUS
     Route: 042
     Dates: start: 20060317, end: 20060317
  2. ANTIBIOTIC (ANTIBIOTICS NOS) [Suspect]
     Indication: DRUG USE FOR UNKNOWN INDICATION
  3. UNASYN (AMPICILLIN, SULBACTAM SODIUM) [Concomitant]
  4. PRIMAXIN [Concomitant]
  5. CEFOPERAZONE, SULBACTAM (CEFOPERAZONE SODIUM, SULBACTAM SODIUM) [Concomitant]

REACTIONS (5)
  - DIALYSIS [None]
  - HAEMORRHAGIC CEREBRAL INFARCTION [None]
  - OEDEMA [None]
  - RENAL FAILURE [None]
  - RESPIRATORY ARREST [None]
